FAERS Safety Report 8876021 (Version 1)
Quarter: 2012Q4

REPORT INFORMATION
  Report Type: 
  Country: FR (occurrence: FR)
  Receive Date: 20121030
  Receipt Date: 20121030
  Transmission Date: 20130627
  Serious: Yes (Hospitalization)
  Sender: FDA-Public Use
  Company Number: FR-ELI_LILLY_AND_COMPANY-FR201210005745

PATIENT
  Age: 45 Year
  Sex: Male

DRUGS (2)
  1. FORSTEO [Suspect]
     Dosage: 20 ug, UNK
  2. FORSTEO [Suspect]
     Dosage: 10 ug, qod

REACTIONS (4)
  - Back pain [Unknown]
  - Arthralgia [Unknown]
  - Hyperhidrosis [Unknown]
  - Off label use [Unknown]
